FAERS Safety Report 5698345-0 (Version None)
Quarter: 2008Q2

REPORT INFORMATION
  Report Type: 
  Country: None (occurrence: None)
  Receive Date: 20080408
  Receipt Date: 20080328
  Transmission Date: 20081010
  Serious: Yes (Other)
  Sender: FDA-Public Use
  Company Number: US-PFIZER INC-2008029702

PATIENT
  Sex: Male
  Weight: 84.09 kg

DRUGS (4)
  1. CHANTIX [Suspect]
     Indication: SMOKING CESSATION THERAPY
     Route: 048
  2. ALPRAZOLAM [Suspect]
     Indication: ANXIETY
     Dosage: TEXT:DAILY EVERY DAY
  3. LITHIUM CARBONATE [Concomitant]
  4. LAMICTAL [Concomitant]

REACTIONS (3)
  - ANXIETY [None]
  - APNOEA [None]
  - PARANOIA [None]
